FAERS Safety Report 5322917-6 (Version None)
Quarter: 2007Q2

REPORT INFORMATION
  Report Type: 
  Country: None (occurrence: None)
  Receive Date: 20070222
  Receipt Date: 20060919
  Transmission Date: 20071010
  Serious: Yes (Other)
  Sender: FDA-Public Use
  Company Number: 2006111309

PATIENT
  Age: 46 Year
  Sex: Male
  Weight: 63.5036 kg

DRUGS (5)
  1. EXUBERA [Suspect]
     Indication: DIABETES MELLITUS INSULIN-DEPENDENT
     Dosage: (3 MG),INHALATION
     Route: 055
     Dates: start: 20060911
  2. NOVOLOG [Concomitant]
  3. PROGRAF [Concomitant]
  4. LIPITOR [Concomitant]
  5. MONOPRIL [Concomitant]

REACTIONS (4)
  - DRUG INEFFECTIVE [None]
  - DYSGEUSIA [None]
  - HYPERGLYCAEMIA [None]
  - PARAESTHESIA [None]
